FAERS Safety Report 18934957 (Version 1)
Quarter: 2021Q1

REPORT INFORMATION
  Report Type: Spontaneous
  Country: US (occurrence: US)
  Receive Date: 20210224
  Receipt Date: 20210224
  Transmission Date: 20210420
  Serious: No
  Sender: FDA-Public Use
  Company Number: US-CARDINAL HEALTH 414, LLC-2107251

PATIENT
  Sex: Male
  Weight: 111 kg

DRUGS (2)
  1. TECHNETIUM TC?99M SESTAMIBI KIT [Suspect]
     Active Substance: TECHNETIUM TC-99M SESTAMIBI
     Indication: SCAN MYOCARDIAL PERFUSION
     Route: 042
     Dates: start: 20210119, end: 20210119
  2. LEXISCAN [Concomitant]
     Active Substance: REGADENOSON
     Dates: start: 20210119, end: 20210119

REACTIONS (6)
  - Urticaria [Unknown]
  - Hypoaesthesia [Unknown]
  - Dizziness [Unknown]
  - Swelling [Unknown]
  - Hypersensitivity [Unknown]
  - Dyspnoea [Unknown]

NARRATIVE: CASE EVENT DATE: 20210119
